FAERS Safety Report 18578600 (Version 4)
Quarter: 2021Q2

REPORT INFORMATION
  Report Type: Report from Study
  Country: US (occurrence: US)
  Receive Date: 20201204
  Receipt Date: 20210409
  Transmission Date: 20210717
  Serious: Yes (Death, Life-Threatening, Hospitalization)
  Sender: FDA-Public Use
  Company Number: US-ROCHE-2693123

PATIENT
  Age: 62 Year
  Sex: Male
  Weight: 65.3 kg

DRUGS (26)
  1. PROTONIX [Concomitant]
     Active Substance: PANTOPRAZOLE SODIUM
     Indication: GASTROOESOPHAGEAL REFLUX DISEASE
     Route: 042
     Dates: start: 20201008, end: 20201016
  2. FENTANYL. [Concomitant]
     Active Substance: FENTANYL
     Indication: PAIN
     Route: 042
     Dates: start: 20201008, end: 20201016
  3. ATEZOLIZUMAB. [Suspect]
     Active Substance: ATEZOLIZUMAB
     Indication: PANCREATIC CARCINOMA METASTATIC
     Dosage: MOST RECENT DOSE OF STUDY DRUG 1 (ATEZOLIZUMAB) A ADMINISTERED PRIOR TO ADVERSE EVENT ONSET 24/SEP/2
     Route: 041
     Dates: start: 20200903
  4. GEMCITABINE. [Suspect]
     Active Substance: GEMCITABINE
     Indication: PANCREATIC CARCINOMA METASTATIC
     Dosage: MOST RECENT DOSE OF STUDY DRUG 1B (GEMCITABIN) PRIOR TO ADVERSE EVENT ONSET 24/SEP/2020 1760 MG?AS P
     Route: 042
     Dates: start: 20200903
  5. PROCHLORPERAZINE MALEATE. [Concomitant]
     Active Substance: PROCHLORPERAZINE MALEATE
     Indication: VOMITING
  6. METFORMIN HYDROCHLORIDE. [Concomitant]
     Active Substance: METFORMIN HYDROCHLORIDE
     Indication: TYPE 2 DIABETES MELLITUS
  7. NALOXONE [Concomitant]
     Active Substance: NALOXONE
     Indication: PAIN
     Route: 042
     Dates: start: 20201008, end: 20201016
  8. PROCHLORPERAZINE MALEATE. [Concomitant]
     Active Substance: PROCHLORPERAZINE MALEATE
     Indication: NAUSEA
     Dates: start: 20200903
  9. ASPIRIN. [Concomitant]
     Active Substance: ASPIRIN
     Indication: CORONARY ARTERY DISEASE
  10. DOCUSATE SODIUM. [Concomitant]
     Active Substance: DOCUSATE SODIUM
     Indication: CONSTIPATION
  11. DEXTROSE;SODIUM CHLORIDE [Concomitant]
     Dates: start: 20200910, end: 20200910
  12. ZOFRAN [Concomitant]
     Active Substance: ONDANSETRON HYDROCHLORIDE
     Indication: NAUSEA
     Route: 042
     Dates: start: 20201008, end: 20201016
  13. LOVENOX [Concomitant]
     Active Substance: ENOXAPARIN SODIUM
     Indication: DEEP VEIN THROMBOSIS
     Route: 058
     Dates: start: 20201008, end: 20201027
  14. VANCOMYCIN [Concomitant]
     Active Substance: VANCOMYCIN
     Indication: SEPSIS
     Route: 042
     Dates: start: 20201008, end: 20201012
  15. BEVACIZUMAB. [Suspect]
     Active Substance: BEVACIZUMAB
     Indication: PANCREATIC CARCINOMA METASTATIC
     Dosage: MOST RECENT DOSE OF STUDY DRUG 1D (BEVACIZUMAB) PRIOR TO ADVERSE EVENT ONSET 24/SEP/2020 677 MG?AS P
     Route: 042
     Dates: start: 20200903
  16. ONDANSETRON HYDROCHLORIDE. [Concomitant]
     Active Substance: ONDANSETRON HYDROCHLORIDE
     Indication: NAUSEA
     Dates: start: 20200903
  17. PIPERACILLIN/TAZOBACTAM [Concomitant]
     Active Substance: PIPERACILLIN SODIUM\TAZOBACTAM SODIUM
     Indication: SEPSIS
     Route: 042
     Dates: start: 20201008, end: 20201012
  18. CEFEPIME [Concomitant]
     Active Substance: CEFEPIME HYDROCHLORIDE
     Route: 042
     Dates: start: 20201012, end: 20201012
  19. ACETAMINOPHEN. [Concomitant]
     Active Substance: ACETAMINOPHEN
     Indication: PAIN
  20. METOPROLOL SUCCINATE. [Concomitant]
     Active Substance: METOPROLOL SUCCINATE
     Indication: HYPERTENSION
  21. GLIPIZIDE. [Concomitant]
     Active Substance: GLIPIZIDE
     Indication: TYPE 2 DIABETES MELLITUS
  22. OXYCODONE HYDROCHLORIDE. [Concomitant]
     Active Substance: OXYCODONE HYDROCHLORIDE
     Indication: PAIN
  23. HEPARIN [Concomitant]
     Active Substance: HEPARIN SODIUM
  24. LOVENOX [Concomitant]
     Active Substance: ENOXAPARIN SODIUM
  25. NAB?PACLITAXEL [Suspect]
     Active Substance: PACLITAXEL
     Indication: PANCREATIC CARCINOMA METASTATIC
     Dosage: MOST RECENT DOSE OF STUDY DRUG 1C (NAB?PACLITAXEL) PRIOR TO ADVERSE EVENT ONSET 24/SEP/2020 220 MG?A
     Route: 042
     Dates: start: 20200903
  26. MEGESTROL ACETATE. [Concomitant]
     Active Substance: MEGESTROL ACETATE
     Indication: DECREASED APPETITE
     Dates: start: 20200924

REACTIONS (2)
  - Duodenal perforation [Recovered/Resolved]
  - Small intestinal obstruction [Recovered/Resolved]

NARRATIVE: CASE EVENT DATE: 20201008
